FAERS Safety Report 5087292-3 (Version None)
Quarter: 2006Q3

REPORT INFORMATION
  Report Type: 
  Country: None (occurrence: None)
  Receive Date: 20060801
  Receipt Date: 20050727
  Transmission Date: 20061208
  Serious: Yes (Other)
  Sender: FDA-Public Use
  Company Number: OMPQ-PR-0507S-1105

PATIENT
  Age: 31 Year
  Sex: Female

DRUGS (8)
  1. OMNIPAQUE 140 [Suspect]
     Indication: SCIATICA
     Dosage: 10 ML, SINGLE DOSE, EPIDURAL
     Route: 008
     Dates: start: 20050727, end: 20050727
  2. BETAMETHASONE (CELESTONE) [Concomitant]
  3. NALOXONE HYDROCHLORIDE (NARCAN) [Concomitant]
  4. LIDOCAINE [Concomitant]
  5. XANAX [Concomitant]
  6. VICODIN [Concomitant]
  7. BIRTH CONTROL PILLS [Concomitant]
  8. ACETAMINOPHEN [Concomitant]

REACTIONS (1)
  - ANAPHYLACTOID REACTION [None]
